FAERS Safety Report 13967706 (Version 1)
Quarter: 2017Q3

REPORT INFORMATION
  Report Type: Spontaneous
  Country: IN (occurrence: IN)
  Receive Date: 20170914
  Receipt Date: 20170914
  Transmission Date: 20171128
  Serious: Yes (Life-Threatening, Other)
  Sender: FDA-Public Use
  Company Number: IN-SUN PHARMACEUTICAL INDUSTRIES LTD-2017R1-149679

PATIENT
  Age: 49 Year
  Sex: Male

DRUGS (5)
  1. LITHIUM. [Suspect]
     Active Substance: LITHIUM
     Dosage: 150 MG, BID
     Route: 065
  2. LITHIUM. [Suspect]
     Active Substance: LITHIUM
     Indication: CLUSTER HEADACHE
     Dosage: 300 MG, BID
     Route: 065
  3. FLUNARIZINE [Concomitant]
     Active Substance: FLUNARIZINE
     Indication: PRODUCT USED FOR UNKNOWN INDICATION
     Dosage: 10 MG, DAILY
     Route: 065
  4. TRAMADOL/ACETAMINOPHEN [Suspect]
     Active Substance: ACETAMINOPHEN\TRAMADOL
     Indication: CLUSTER HEADACHE
     Dosage: UNK, BID
     Route: 065
  5. AMITRIPTYLINE [Suspect]
     Active Substance: AMITRIPTYLINE
     Indication: CLUSTER HEADACHE
     Dosage: 75 MG, DAILY
     Route: 065

REACTIONS (1)
  - Serotonin syndrome [Recovered/Resolved]
